FAERS Safety Report 8960504 (Version 1)
Quarter: 2012Q4

REPORT INFORMATION
  Report Type: Spontaneous
  Country: US (occurrence: None)
  Receive Date: 20121211
  Receipt Date: 20121211
  Transmission Date: 20130627
  Serious: Yes (Other)
  Sender: FDA-Public Use
  Company Number: None

PATIENT
  Age: 63 Year
  Sex: Male
  Weight: 83.92 kg

DRUGS (1)
  1. HYDROCODONE + ACETAMINOPHEN [Suspect]
     Dosage: 1 tablet  every 4 - 6 hrs  po
     Route: 048
     Dates: start: 20121127, end: 20121207

REACTIONS (2)
  - Oedema [None]
  - Weight increased [None]
